FAERS Safety Report 8929083 (Version 2)
Quarter: 2014Q2

REPORT INFORMATION
  Report Type: Spontaneous
  Country: GB (occurrence: GB)
  Receive Date: 20121127
  Receipt Date: 20140617
  Transmission Date: 20141212
  Serious: Yes (Life-Threatening, Disabling, Other)
  Sender: FDA-Public Use
  Company Number: PHHY2012GB107434

PATIENT
  Age: 42 Year
  Sex: Female
  Weight: 55.78 kg

DRUGS (1)
  1. CITALOPRAM [Suspect]
     Indication: ILL-DEFINED DISORDER
     Dosage: 20 MG
     Route: 048
     Dates: start: 20120910

REACTIONS (5)
  - Nightmare [Not Recovered/Not Resolved]
  - Abnormal behaviour [Not Recovered/Not Resolved]
  - Agoraphobia [Not Recovered/Not Resolved]
  - Hallucination [Not Recovered/Not Resolved]
  - Tremor [Not Recovered/Not Resolved]
